FAERS Safety Report 21643200 (Version 1)
Quarter: 2022Q4

REPORT INFORMATION
  Report Type: Spontaneous
  Country: CH (occurrence: CH)
  Receive Date: 20221125
  Receipt Date: 20221125
  Transmission Date: 20230112
  Serious: Yes (Other)
  Sender: FDA-Public Use
  Company Number: CH-MLMSERVICE-20221114-3917676-1

PATIENT
  Age: 84 Year
  Sex: Male

DRUGS (14)
  1. LORAZEPAM [Suspect]
     Active Substance: LORAZEPAM
     Indication: Anticipatory anxiety
     Route: 065
  2. OXYGEN [Concomitant]
     Active Substance: OXYGEN
     Indication: COVID-19
     Dosage: HIGH-FLOW
     Route: 045
  3. OXYGEN [Concomitant]
     Active Substance: OXYGEN
     Indication: Acute respiratory distress syndrome
     Route: 045
     Dates: start: 2021
  4. CLEMASTINE [Concomitant]
     Active Substance: CLEMASTINE
     Indication: Respiratory failure
  5. CLEMASTINE [Concomitant]
     Active Substance: CLEMASTINE
     Indication: Hypotension
  6. CLEMASTINE [Concomitant]
     Active Substance: CLEMASTINE
     Indication: Tachycardia
  7. DEXAMETHASONE [Concomitant]
     Active Substance: DEXAMETHASONE
     Indication: Product used for unknown indication
     Route: 048
  8. PREDNISONE [Concomitant]
     Active Substance: PREDNISONE
     Indication: Product used for unknown indication
     Route: 048
  9. PIPERACILLIN AND TAZOBACTAM [Concomitant]
     Active Substance: PIPERACILLIN SODIUM\TAZOBACTAM SODIUM
     Indication: Superinfection bacterial
     Route: 042
  10. PIPERACILLIN AND TAZOBACTAM [Concomitant]
     Active Substance: PIPERACILLIN SODIUM\TAZOBACTAM SODIUM
     Indication: Pneumonia
  11. AMOXICILLIN [Concomitant]
     Active Substance: AMOXICILLIN
     Indication: Sepsis
     Route: 042
  12. AMOXICILLIN [Concomitant]
     Active Substance: AMOXICILLIN
     Indication: Enterococcal bacteraemia
  13. MORPHINE SULFATE [Concomitant]
     Active Substance: MORPHINE SULFATE
     Indication: Dyspnoea
  14. MORPHINE SULFATE [Concomitant]
     Active Substance: MORPHINE SULFATE
     Dosage: SUPPLEMENTARY MORPHINE

REACTIONS (2)
  - Drug intolerance [Recovered/Resolved]
  - Delirium [Unknown]
